FAERS Safety Report 12948143 (Version 2)
Quarter: 2016Q4

REPORT INFORMATION
  Report Type: Spontaneous
  Country: IT (occurrence: IT)
  Receive Date: 20161117
  Receipt Date: 20161129
  Transmission Date: 20170207
  Serious: Yes (Other)
  Sender: FDA-Public Use
  Company Number: IT-ROCHE-1850945

PATIENT
  Age: 74 Year
  Sex: Female

DRUGS (2)
  1. VIVIN C (ITALY) [Concomitant]
  2. ERIVEDGE [Suspect]
     Active Substance: VISMODEGIB
     Indication: NEOPLASM
     Route: 065
     Dates: start: 20150115

REACTIONS (4)
  - Diarrhoea [Unknown]
  - Weight decreased [Unknown]
  - Dysentery [Unknown]
  - Drug ineffective [Unknown]

NARRATIVE: CASE EVENT DATE: 201610
